FAERS Safety Report 4482584-0 (Version None)
Quarter: 2004Q4

REPORT INFORMATION
  Report Type: 
  Country: None (occurrence: None)
  Receive Date: 20041022
  Receipt Date: 20031128
  Transmission Date: 20050328
  Serious: Yes (Hospitalization)
  Sender: FDA-Public Use
  Company Number: BE-JNJFOC-20031200331

PATIENT
  Sex: Male

DRUGS (6)
  1. CISAPRIDE [Suspect]
     Dates: start: 20031113
  2. VITAMIN E [Concomitant]
  3. PROTOVIT [Concomitant]
     Route: 049
  4. ZANTAC [Concomitant]
  5. CREON [Concomitant]
  6. MISTABRON [Concomitant]
     Route: 055

REACTIONS (2)
  - CONDITION AGGRAVATED [None]
  - CYSTIC FIBROSIS PANCREATIC [None]
